FAERS Safety Report 14047277 (Version 1)
Quarter: 2017Q4

REPORT INFORMATION
  Report Type: Spontaneous
  Country: NL (occurrence: NL)
  Receive Date: 20171005
  Receipt Date: 20171005
  Transmission Date: 20180321
  Serious: Yes (Disabling, Other)
  Sender: FDA-Public Use
  Company Number: NL-JNJFOC-20171001460

PATIENT
  Sex: Female

DRUGS (1)
  1. XEPLION [Suspect]
     Active Substance: PALIPERIDONE PALMITATE
     Indication: PRODUCT USED FOR UNKNOWN INDICATION
     Route: 030

REACTIONS (6)
  - Concussion [Unknown]
  - Gait inability [Unknown]
  - Pneumonia [Unknown]
  - Weight increased [Unknown]
  - Parkinsonism [Unknown]
  - Syncope [Unknown]

NARRATIVE: CASE EVENT DATE: 2016
